FAERS Safety Report 15657400 (Version 1)
Quarter: 2018Q4

REPORT INFORMATION
  Report Type: Spontaneous
  Country: FR (occurrence: FR)
  Receive Date: 20181126
  Receipt Date: 20181126
  Transmission Date: 20190205
  Serious: Yes (Life-Threatening, Hospitalization, Other)
  Sender: FDA-Public Use
  Company Number: FR-SAKK-2018SA191196AA

PATIENT
  Age: 34 Year
  Sex: Female
  Weight: 183 kg

DRUGS (53)
  1. GLUCOSE [Concomitant]
     Active Substance: DEXTROSE
     Indication: PROPHYLAXIS
     Dosage: UNK
     Route: 065
     Dates: start: 20161130, end: 20161130
  2. BEVITINE [Concomitant]
     Active Substance: THIAMINE HYDROCHLORIDE
     Indication: PROPHYLAXIS
  3. INEXIUM                            /01479302/ [Concomitant]
     Active Substance: ESOMEPRAZOLE MAGNESIUM
     Indication: HYPERCHLORHYDRIA
     Dosage: UNK
     Route: 065
     Dates: end: 201609
  4. VITAMIN B6 [Concomitant]
     Active Substance: PYRIDOXINE HYDROCHLORIDE
     Indication: PROPHYLAXIS
     Dosage: UNK
     Route: 065
     Dates: start: 20160913
  5. EPHEDRINE. [Concomitant]
     Active Substance: EPHEDRINE
     Indication: PROPHYLAXIS
     Dosage: UNK
     Route: 065
     Dates: start: 20161130, end: 20161130
  6. UVEDOSE [Concomitant]
     Active Substance: CHOLECALCIFEROL
     Indication: PROPHYLAXIS
     Dosage: UNK
     Route: 065
     Dates: start: 20160530, end: 20160531
  7. NEFOPAM [Concomitant]
     Active Substance: NEFOPAM
     Dosage: UNK
     Route: 065
     Dates: start: 20161201, end: 20161202
  8. CLINDAMYCINE                       /00166002/ [Concomitant]
     Active Substance: CLINDAMYCIN HYDROCHLORIDE
     Indication: PROPHYLAXIS
     Dosage: UNK
     Route: 065
     Dates: start: 20161130, end: 20161130
  9. FOLIC ACID. [Concomitant]
     Active Substance: FOLIC ACID
     Dosage: UNK
  10. GAVISCON                           /00237601/ [Concomitant]
     Active Substance: ALUMINUM HYDROXIDE\MAGNESIUM CARBONATE
     Indication: PROPHYLAXIS
     Dosage: UNK
     Route: 065
     Dates: start: 20161117, end: 201612
  11. PABAL [Concomitant]
     Active Substance: CARBETOCIN
     Indication: DELIVERY
     Dosage: UNK
     Route: 065
     Dates: start: 20161130, end: 20161130
  12. SPASFON                            /00765801/ [Concomitant]
     Active Substance: PHLOROGLUCINOL\1,3,5-TRIMETHOXYBENZENE
     Dosage: UNK
     Route: 065
     Dates: start: 20161116, end: 20161116
  13. NOVORAPID [Suspect]
     Active Substance: INSULIN ASPART
     Indication: TYPE 2 DIABETES MELLITUS
     Dosage: 178.2 IU, QD
     Route: 058
  14. ACUPAN [Concomitant]
     Active Substance: NEFOPAM HYDROCHLORIDE
     Indication: ARTHRALGIA
     Dosage: UNK
     Route: 065
     Dates: start: 20161130, end: 20161130
  15. LACTATED RINGERS SOLUTION [Concomitant]
     Active Substance: CALCIUM CHLORIDE\POTASSIUM CHLORIDE\SODIUM CHLORIDE\SODIUM LACTATE
     Indication: PROPHYLAXIS
     Dosage: UNK
     Route: 065
     Dates: start: 20161130, end: 20161130
  16. SPASFON                            /00765801/ [Concomitant]
     Active Substance: PHLOROGLUCINOL\1,3,5-TRIMETHOXYBENZENE
     Indication: PROPHYLAXIS
     Dosage: UNK
     Route: 065
     Dates: start: 20160906, end: 201609
  17. TARDYFERON [Concomitant]
     Active Substance: FERROUS SULFATE
     Indication: ANAEMIA
     Dosage: UNK
     Route: 065
     Dates: start: 20161121, end: 20161123
  18. SPECIAFOLDINE [Concomitant]
     Active Substance: FOLIC ACID
     Indication: PROPHYLAXIS
     Dosage: UNK
     Dates: start: 20160520, end: 201609
  19. VITAMIN C [Concomitant]
     Active Substance: ASCORBIC ACID
     Indication: VITAMIN C DEFICIENCY
     Dosage: UNK
     Route: 065
     Dates: start: 20160623, end: 20160808
  20. LOVENOX [Concomitant]
     Active Substance: ENOXAPARIN SODIUM
     Indication: ARTHRALGIA
     Dosage: UNK
     Dates: start: 20161109, end: 20161127
  21. ZOPHREN                            /00955301/ [Concomitant]
     Active Substance: ONDANSETRON
     Indication: PROPHYLAXIS
     Dosage: UNK
     Route: 065
     Dates: start: 20161130, end: 20161130
  22. PARACETAMOL [Concomitant]
     Active Substance: ACETAMINOPHEN
     Indication: PROPHYLAXIS
     Dosage: UNK
     Route: 065
     Dates: start: 20160906, end: 201609
  23. UVESTEROL [Concomitant]
     Active Substance: ASCORBIC ACID\ERGOCALCIFEROL\RETINOL\TOCOPHEROL
     Indication: PROPHYLAXIS
     Dosage: UNK
     Route: 065
     Dates: start: 20161201
  24. LOVENOX [Concomitant]
     Active Substance: ENOXAPARIN SODIUM
     Dosage: UNK UNK, UNK
     Route: 065
     Dates: start: 20161130, end: 201612
  25. ACUPAN [Concomitant]
     Active Substance: NEFOPAM HYDROCHLORIDE
     Dosage: UNK UNK, UNK
     Route: 065
     Dates: start: 20161122, end: 20161122
  26. PARACETAMOL [Concomitant]
     Active Substance: ACETAMINOPHEN
     Indication: HEADACHE
     Dosage: UNK
     Dates: start: 20161201, end: 20161202
  27. PARACETAMOL [Concomitant]
     Active Substance: ACETAMINOPHEN
     Dosage: UNK
     Dates: start: 20161126, end: 20161126
  28. NEOSYNEPHRINE [Concomitant]
     Active Substance: PHENYLEPHRINE HYDROCHLORIDE
     Indication: PROPHYLAXIS
     Dosage: UNK
     Route: 065
     Dates: start: 20161130, end: 20161130
  29. KARDEGIC [Concomitant]
     Active Substance: ASPIRIN DL-LYSINE
     Indication: OBESITY
  30. ACTISKENAN [Concomitant]
     Active Substance: MORPHINE SULFATE
     Dosage: UNK
     Route: 065
     Dates: start: 20161201, end: 20161202
  31. GENTAMYCINE [Concomitant]
     Active Substance: GENTAMICIN
     Indication: PROPHYLAXIS
     Dosage: UNK
     Route: 065
     Dates: start: 20161130, end: 20161130
  32. NOVORAPID [Suspect]
     Active Substance: INSULIN ASPART
     Dosage: 93.8 UNK
     Route: 058
     Dates: start: 20160526
  33. EUPANTOL [Concomitant]
     Active Substance: PANTOPRAZOLE SODIUM
     Indication: GASTROOESOPHAGEAL REFLUX DISEASE
     Dosage: UNK
     Route: 065
     Dates: start: 20161201, end: 20161202
  34. TARDYFERON [Concomitant]
     Active Substance: FERROUS SULFATE
     Indication: PROPHYLAXIS
     Route: 065
     Dates: start: 20160826
  35. TITANOREINE                        /02208801/ [Concomitant]
     Indication: HAEMORRHOIDS
     Dosage: UNK
     Route: 065
     Dates: start: 20161111, end: 201611
  36. THIOPENTAL [Concomitant]
     Active Substance: THIOPENTAL
     Indication: GENERAL ANAESTHESIA
     Dosage: UNK
     Route: 065
     Dates: start: 20161130, end: 20161130
  37. OXYNORM [Concomitant]
     Active Substance: OXYCODONE HYDROCHLORIDE
     Dosage: UNK
     Route: 065
     Dates: start: 20161130, end: 20161201
  38. LAROSCORBINE [Concomitant]
     Active Substance: ASCORBIC ACID
     Indication: PROPHYLAXIS
     Dosage: UNK
     Dates: start: 20160617, end: 201607
  39. SUFENTA [Concomitant]
     Active Substance: SUFENTANIL CITRATE
     Indication: GENERAL ANAESTHESIA
     Dosage: UNK
     Route: 065
     Dates: start: 20161130, end: 20161130
  40. BRICANYL [Concomitant]
     Active Substance: TERBUTALINE SULFATE
     Dosage: UNK
     Route: 065
  41. VITAMIN C [Concomitant]
     Active Substance: ASCORBIC ACID
     Dosage: UNK
     Route: 065
     Dates: start: 20160823
  42. DEXAMETHASONE. [Concomitant]
     Active Substance: DEXAMETHASONE
     Indication: PROPHYLAXIS
     Dosage: UNK
     Route: 065
     Dates: start: 20161130, end: 20161130
  43. CEPHAZOLINE SODIUM [Concomitant]
     Active Substance: CEFAZOLIN SODIUM
     Indication: PROPHYLAXIS
     Dosage: UNK
     Route: 065
     Dates: start: 20161130, end: 20161130
  44. VITAMIN K [Concomitant]
     Active Substance: PHYTONADIONE
     Indication: PROPHYLAXIS
     Dosage: UNK
     Route: 065
     Dates: start: 20161203, end: 201612
  45. KARDEGIC [Concomitant]
     Active Substance: ASPIRIN DL-LYSINE
     Indication: DIABETES MELLITUS
     Route: 065
     Dates: start: 20160520, end: 201609
  46. LOXEN L P [Concomitant]
     Active Substance: NICARDIPINE HYDROCHLORIDE
     Indication: HYPERTENSION
     Dosage: UNK
     Dates: start: 20160530, end: 201608
  47. LANTUS [Suspect]
     Active Substance: INSULIN GLARGINE
     Dosage: UNK UNK, UNK
     Route: 058
  48. NOVORAPID [Suspect]
     Active Substance: INSULIN ASPART
     Dosage: 118.8 UNK
     Route: 058
  49. CELOCURINE                         /00057702/ [Concomitant]
     Active Substance: SUCCINYLCHOLINE CHLORIDE
     Indication: GENERAL ANAESTHESIA
     Dosage: UNK
     Route: 065
     Dates: start: 20161130, end: 20161130
  50. BEVITINE [Concomitant]
     Active Substance: THIAMINE HYDROCHLORIDE
     Indication: HYPOVITAMINOSIS
     Dosage: UNK
     Dates: start: 20160617, end: 2016
  51. KETOPROFEN. [Concomitant]
     Active Substance: KETOPROFEN
     Dosage: UNK
     Route: 065
     Dates: start: 20161130, end: 20161201
  52. MONURIL [Concomitant]
     Active Substance: FOSFOMYCIN TROMETHAMINE
     Indication: PROPHYLAXIS
     Dosage: UNK
     Route: 065
     Dates: start: 201606, end: 201606
  53. INEXIUM                            /01479302/ [Concomitant]
     Active Substance: ESOMEPRAZOLE MAGNESIUM
     Dosage: UNK
     Route: 065
     Dates: start: 20161117, end: 201612

REACTIONS (8)
  - Hypovitaminosis [Recovered/Resolved]
  - Exposure during pregnancy [Unknown]
  - Hypoglycaemia [Recovered/Resolved]
  - Foetal disorder [Not Recovered/Not Resolved]
  - Diabetes mellitus inadequate control [Recovered/Resolved]
  - Postpartum haemorrhage [Recovered/Resolved]
  - Arthralgia [Recovered/Resolved]
  - Injection site pain [Recovered/Resolved]

NARRATIVE: CASE EVENT DATE: 20160526
